FAERS Safety Report 6983899-4 (Version None)
Quarter: 2010Q3

REPORT INFORMATION
  Report Type: 
  Country: None (occurrence: None)
  Receive Date: 20100914
  Receipt Date: 20090616
  Transmission Date: 20110219
  Serious: No
  Sender: FDA-Public Use
  Company Number: US-WYE-H08677109

PATIENT
  Sex: Female
  Weight: 65.83 kg

DRUGS (6)
  1. PRISTIQ [Suspect]
     Indication: HOT FLUSH
     Route: 048
     Dates: start: 20090322, end: 20090323
  2. ACIPHEX [Concomitant]
  3. LUNESTA [Concomitant]
  4. ESTRADIOL [Concomitant]
  5. TOPROL-XL [Concomitant]
  6. PROMETRIUM [Concomitant]

REACTIONS (2)
  - INSOMNIA [None]
  - MYDRIASIS [None]
